FAERS Safety Report 20089291 (Version 2)
Quarter: 2022Q1

REPORT INFORMATION
  Report Type: Spontaneous
  Country: US (occurrence: US)
  Receive Date: 20211119
  Receipt Date: 20220107
  Transmission Date: 20220423
  Serious: No
  Sender: FDA-Public Use
  Company Number: US-BAYER-2021A252132

PATIENT
  Age: 7 Decade
  Sex: Male

DRUGS (1)
  1. KERENDIA [Suspect]
     Active Substance: FINERENONE

REACTIONS (3)
  - Nausea [None]
  - Dizziness [None]
  - Retching [None]

NARRATIVE: CASE EVENT DATE: 20211115
